FAERS Safety Report 13716565 (Version 4)
Quarter: 2018Q3

REPORT INFORMATION
  Report Type: Report from Study
  Country: DO (occurrence: DO)
  Receive Date: 20170705
  Receipt Date: 20180917
  Transmission Date: 20181010
  Serious: Yes (Disabling, Other)
  Sender: FDA-Public Use
  Company Number: PHHY2017DO061620

PATIENT
  Age: 60 Year
  Sex: Male

DRUGS (1)
  1. GILENYA [Suspect]
     Active Substance: FINGOLIMOD HYDROCHLORIDE
     Indication: PRODUCT USED FOR UNKNOWN INDICATION
     Dosage: 0.5 MG, UNK
     Route: 065

REACTIONS (9)
  - Balance disorder [Unknown]
  - Asthenia [Unknown]
  - Concomitant disease aggravated [Unknown]
  - Multiple sclerosis [Unknown]
  - Malaise [Unknown]
  - Optic nerve injury [Unknown]
  - Visual impairment [Unknown]
  - Fatigue [Unknown]
  - Mobility decreased [Unknown]
